FAERS Safety Report 18584446 (Version 2)
Quarter: 2024Q2

REPORT INFORMATION
  Report Type: Spontaneous
  Country: US (occurrence: None)
  Receive Date: 20201207
  Receipt Date: 20240429
  Transmission Date: 20240716
  Serious: Yes (Hospitalization)
  Sender: FDA-Public Use
  Company Number: US-ROCHE-2727145

PATIENT
  Age: 54 Year
  Sex: Male

DRUGS (1)
  1. ROZLYTREK [Suspect]
     Active Substance: ENTRECTINIB
     Indication: Illness
     Dosage: ONGOING: YES
     Route: 048
     Dates: start: 20200909

REACTIONS (5)
  - Pulmonary embolism [Recovered/Resolved]
  - COVID-19 [Recovered/Resolved]
  - Staphylococcal bacteraemia [Recovered/Resolved]
  - Cardiac arrest [Recovered/Resolved]
  - Skin warm [Unknown]
